FAERS Safety Report 9595736 (Version 2)
Quarter: 2013Q4

REPORT INFORMATION
  Report Type: Report from Study
  Country: CA (occurrence: CA)
  Receive Date: 20131004
  Receipt Date: 20131004
  Transmission Date: 20140711
  Serious: Yes (Hospitalization, Other)
  Sender: FDA-Public Use
  Company Number: PHHY2013CA107769

PATIENT
  Age: 50 Year
  Sex: Female

DRUGS (2)
  1. GILENYA [Suspect]
     Indication: RELAPSING-REMITTING MULTIPLE SCLEROSIS
     Dosage: 0.5 MG, QD
     Route: 048
     Dates: start: 20130925, end: 20130926
  2. AMLODIPINE [Concomitant]
     Dates: start: 20130925

REACTIONS (9)
  - Sinus arrhythmia [Unknown]
  - Chest discomfort [Not Recovered/Not Resolved]
  - Extrasystoles [Unknown]
  - Chest pain [Unknown]
  - Dizziness [Unknown]
  - Atrioventricular block first degree [Unknown]
  - Blood potassium increased [Unknown]
  - Blood creatine phosphokinase increased [Unknown]
  - Dyspnoea [Not Recovered/Not Resolved]
